FAERS Safety Report 25897211 (Version 1)
Quarter: 2025Q4

REPORT INFORMATION
  Report Type: Spontaneous
  Country: BR (occurrence: BR)
  Receive Date: 20251008
  Receipt Date: 20251008
  Transmission Date: 20260117
  Serious: Yes (Hospitalization, Other)
  Sender: GLAND PHARMA LTD
  Company Number: BR-GLANDPHARMA-BR-2025GLNLIT01965

PATIENT
  Age: 64 Year
  Sex: Male

DRUGS (6)
  1. CISPLATIN [Suspect]
     Active Substance: CISPLATIN
     Indication: Laryngeal cancer stage IV
     Route: 065
  2. CISPLATIN [Suspect]
     Active Substance: CISPLATIN
     Route: 065
     Dates: start: 202108
  3. DOCETAXEL [Suspect]
     Active Substance: DOCETAXEL
     Indication: Laryngeal cancer stage IV
     Route: 065
     Dates: start: 202108
  4. DOCETAXEL [Suspect]
     Active Substance: DOCETAXEL
     Indication: Metastatic squamous cell carcinoma
  5. CETUXIMAB [Suspect]
     Active Substance: CETUXIMAB
     Indication: Laryngeal cancer stage IV
     Route: 065
     Dates: start: 202108
  6. CETUXIMAB [Suspect]
     Active Substance: CETUXIMAB
     Route: 065
     Dates: start: 202108

REACTIONS (3)
  - Pneumonia [Unknown]
  - Severe cutaneous adverse reaction [Unknown]
  - Product use in unapproved indication [Unknown]

NARRATIVE: CASE EVENT DATE: 20210101
